FAERS Safety Report 17689883 (Version 4)
Quarter: 2022Q1

REPORT INFORMATION
  Report Type: Report from Study
  Country: US (occurrence: US)
  Receive Date: 20200421
  Receipt Date: 20220315
  Transmission Date: 20220424
  Serious: No
  Sender: FDA-Public Use
  Company Number: None

PATIENT
  Age: 22 Year
  Sex: Male

DRUGS (2)
  1. ILARIS [Suspect]
     Active Substance: CANAKINUMAB
     Indication: Disease progression
     Dosage: 150 MG (EVERY 8 WEEK)
     Route: 058
     Dates: start: 20190917
  2. ILARIS [Suspect]
     Active Substance: CANAKINUMAB
     Dosage: UNK UNK, Q4W
     Route: 058

REACTIONS (3)
  - Condition aggravated [Not Recovered/Not Resolved]
  - Wrong technique in product usage process [Unknown]
  - Tooth infection [Not Recovered/Not Resolved]

NARRATIVE: CASE EVENT DATE: 20191001
